FAERS Safety Report 7492356-0 (Version None)
Quarter: 2011Q2

REPORT INFORMATION
  Report Type: 
  Country: None (occurrence: None)
  Receive Date: 20110519
  Receipt Date: 20110511
  Transmission Date: 20111010
  Serious: Yes (Other)
  Sender: FDA-Public Use
  Company Number: US-AMGEN-USASP2011017396

PATIENT
  Age: 84 Year
  Sex: Female

DRUGS (3)
  1. ENBREL [Suspect]
  2. TREXALL [Concomitant]
     Dosage: 1 MG, QWK
  3. ENBREL [Suspect]
     Indication: RHEUMATOID ARTHRITIS
     Dosage: 50 MG, QWK
     Dates: start: 20050212

REACTIONS (5)
  - DEMENTIA [None]
  - ANAEMIA [None]
  - VESSEL PUNCTURE SITE PAIN [None]
  - INJECTION SITE PAIN [None]
  - INJECTION SITE HAEMATOMA [None]
